FAERS Safety Report 12343380 (Version 3)
Quarter: 2016Q4

REPORT INFORMATION
  Report Type: Report from Study
  Country: US (occurrence: US)
  Receive Date: 20160506
  Receipt Date: 20161115
  Transmission Date: 20170207
  Serious: Yes (Death, Hospitalization)
  Sender: FDA-Public Use
  Company Number: US-ACTELION-A-NJ2016-134379

PATIENT
  Age: 46 Year
  Sex: Male
  Weight: 121.54 kg

DRUGS (3)
  1. ADCIRCA [Concomitant]
     Active Substance: TADALAFIL
  2. UPTRAVI [Suspect]
     Active Substance: SELEXIPAG
     Indication: PULMONARY ARTERIAL HYPERTENSION
     Dosage: 600 MCG, BID
     Route: 048
     Dates: start: 20160310
  3. UPTRAVI [Suspect]
     Active Substance: SELEXIPAG
     Dosage: 200 MCG, BID
     Route: 048
     Dates: start: 20160310

REACTIONS (7)
  - Diarrhoea [Unknown]
  - Cardiac arrest [Unknown]
  - Respiratory failure [Unknown]
  - Hypercapnia [Unknown]
  - Death [Fatal]
  - Coma [Unknown]
  - Nausea [Unknown]

NARRATIVE: CASE EVENT DATE: 20160418
